FAERS Safety Report 10695863 (Version 1)
Quarter: 2015Q1

REPORT INFORMATION
  Report Type: Spontaneous
  Country: JP (occurrence: None)
  Receive Date: 20150105
  Receipt Date: 20150105
  Transmission Date: 20150721
  Serious: Yes (Life-Threatening)
  Sender: FDA-Public Use
  Company Number: 2668545

PATIENT
  Age: 71 Year
  Sex: Female
  Weight: 51 kg

DRUGS (5)
  1. NEDAPLATIN [Concomitant]
     Active Substance: NEDAPLATIN
  2. IRINOTECAN HYDROCHLORIDE. [Suspect]
     Active Substance: IRINOTECAN HYDROCHLORIDE
     Indication: MALIGNANT PERITONEAL NEOPLASM
     Dosage: (1 DAY) INTRAVENOUS DRIP
     Route: 041
     Dates: start: 20141202, end: 20141202
  3. IRINOTECAN HYDROCHLORIDE. [Suspect]
     Active Substance: IRINOTECAN HYDROCHLORIDE
     Indication: DISEASE RECURRENCE
     Dosage: (1 DAY) INTRAVENOUS DRIP
     Route: 041
     Dates: start: 20141202, end: 20141202
  4. GRANISETRON [Concomitant]
     Active Substance: GRANISETRON
  5. DEXAMETHASONE SODIUM PHOSPHATE. [Concomitant]
     Active Substance: DEXAMETHASONE SODIUM PHOSPHATE

REACTIONS (5)
  - Heart rate increased [None]
  - Small intestinal haemorrhage [None]
  - Anaemia [None]
  - Vomiting [None]
  - Blood pressure decreased [None]

NARRATIVE: CASE EVENT DATE: 20141202
